FAERS Safety Report 4775665-5 (Version None)
Quarter: 2005Q3

REPORT INFORMATION
  Report Type: 
  Country: None (occurrence: None)
  Receive Date: 20050920
  Receipt Date: 20050920
  Transmission Date: 20060218
  Serious: Yes (Life-Threatening)
  Sender: FDA-Public Use
  Company Number: None

PATIENT
  Age: 89 Year
  Sex: Female
  Weight: 55.3388 kg

DRUGS (18)
  1. BACTRIM DS [Suspect]
     Indication: URINARY TRACT INFECTION
     Dosage: 1 DS TAB BID PO
     Route: 048
  2. GLIPIZIDE [Suspect]
     Indication: DIABETES MELLITUS NON-INSULIN-DEPENDENT
     Dosage: 2.5MG DAILY PO
     Route: 048
  3. LIPITOR [Concomitant]
  4. DILTIAZEM HCL [Concomitant]
  5. HYDRALAZINE [Concomitant]
  6. IMDUR [Concomitant]
  7. LEVOXYL [Concomitant]
  8. LASIX [Concomitant]
  9. POTASSIUM CHLORIDE [Concomitant]
  10. GLIPIZIDE [Concomitant]
  11. METOPROLOL [Concomitant]
  12. ASPIRIN [Concomitant]
  13. VITAMIN B6 [Concomitant]
  14. MULTI-VITAMIN [Concomitant]
  15. FOSAMAX [Concomitant]
  16. COLACE [Concomitant]
  17. NITROGLYCERIN [Concomitant]
  18. CALCIUM CARBOHYDRATE [Concomitant]

REACTIONS (4)
  - ACUTE MYOCARDIAL INFARCTION [None]
  - DRUG INTERACTION POTENTIATION [None]
  - HYPOGLYCAEMIA [None]
  - WEIGHT DECREASED [None]
